FAERS Safety Report 8450655-X (Version None)
Quarter: 2012Q2

REPORT INFORMATION
  Report Type: 
  Country: None (occurrence: None)
  Receive Date: 20120620
  Receipt Date: 20120611
  Transmission Date: 20120825
  Serious: Yes (Other)
  Sender: FDA-Public Use
  Company Number: US-ASTRAZENECA-2012SE38975

PATIENT
  Age: 46 Year
  Sex: Female
  Weight: 106.6 kg

DRUGS (14)
  1. VITAMIN SUPER B COMPLEX [Concomitant]
  2. SEROQUEL [Suspect]
     Indication: MAJOR DEPRESSION
     Route: 048
     Dates: start: 20110401
  3. LAMICTAL [Concomitant]
  4. WELLBUTRIN [Concomitant]
  5. CALCIUM [Concomitant]
  6. CHEWABLE MULTIVITAMINS [Concomitant]
     Dosage: DAILY
  7. MAGNESIUM [Concomitant]
  8. GABAPENTIN [Concomitant]
  9. PREVACID [Concomitant]
  10. SEROQUEL [Suspect]
     Dosage: 150 MG EARLY IN THE AFTERNOON AND 300 MG AT NIGHT
     Route: 048
     Dates: start: 20110401
  11. IRON [Concomitant]
  12. SEROQUEL [Suspect]
     Indication: BIPOLAR DISORDER
     Route: 048
     Dates: start: 20110401
  13. SEROQUEL [Suspect]
     Dosage: 150 MG EARLY IN THE AFTERNOON AND 300 MG AT NIGHT
     Route: 048
     Dates: start: 20110401
  14. VITAMIN D [Concomitant]

REACTIONS (2)
  - BACK DISORDER [None]
  - OFF LABEL USE [None]
